FAERS Safety Report 22250953 (Version 1)
Quarter: 2023Q2

REPORT INFORMATION
  Report Type: Spontaneous
  Country: US (occurrence: None)
  Receive Date: 20230425
  Receipt Date: 20230425
  Transmission Date: 20230722
  Serious: Yes (Other)
  Sender: FDA-Public Use
  Company Number: None

PATIENT
  Age: 44 Year
  Sex: Female
  Weight: 82.35 kg

DRUGS (18)
  1. REPATHA [Suspect]
     Active Substance: EVOLOCUMAB
     Indication: Blood cholesterol
     Dosage: FREQUENCY : EVERY OTHER WEEK;?
     Route: 058
     Dates: start: 20230123
  2. TRADJENTA [Concomitant]
     Active Substance: LINAGLIPTIN
  3. GLIMEPIRIDE [Concomitant]
     Active Substance: GLIMEPIRIDE
  4. LEVOTHYROXINE [Concomitant]
     Active Substance: LEVOTHYROXINE
  5. lovasa [Concomitant]
  6. ZETIA [Concomitant]
     Active Substance: EZETIMIBE
  7. REPATHA [Concomitant]
     Active Substance: EVOLOCUMAB
  8. AMLODIPINE [Concomitant]
     Active Substance: AMLODIPINE BESYLATE
  9. VITAMIN B [Concomitant]
     Active Substance: VITAMIN B
  10. VITAMIN B12 [Concomitant]
     Active Substance: CYANOCOBALAMIN
  11. DIETARY SUPPLEMENT [Concomitant]
     Active Substance: DIETARY SUPPLEMENT
  12. ZYRTEC [Concomitant]
     Active Substance: CETIRIZINE HYDROCHLORIDE
  13. FLONASE [Concomitant]
     Active Substance: FLUTICASONE PROPIONATE
  14. XIIDRA [Concomitant]
     Active Substance: LIFITEGRAST
  15. PROBIOTICS NOS [Concomitant]
     Active Substance: PROBIOTICS NOS
  16. VITAMINS [Concomitant]
     Active Substance: VITAMINS
  17. BIOTIN [Concomitant]
     Active Substance: BIOTIN
  18. CALCIUM\VITAMIN D [Concomitant]
     Active Substance: CALCIUM\VITAMIN D

REACTIONS (3)
  - Hypertension [None]
  - Glomerular filtration rate decreased [None]
  - Dialysis [None]

NARRATIVE: CASE EVENT DATE: 20230421
